FAERS Safety Report 4530584-4 (Version None)
Quarter: 2004Q4

REPORT INFORMATION
  Report Type: 
  Country: None (occurrence: None)
  Receive Date: 20041216
  Receipt Date: 20041216
  Transmission Date: 20050328
  Serious: Yes (Life-Threatening, Hospitalization)
  Sender: FDA-Public Use
  Company Number: None

PATIENT

DRUGS (2)
  1. HUMIRA [Suspect]
     Dosage: 40 MGN Q.O.W.
  2. METHOTREXATE [Suspect]
     Dosage: 7.5 MG WEEKLY

REACTIONS (3)
  - ABDOMINAL PAIN [None]
  - ASCITES [None]
  - DISSEMINATED TUBERCULOSIS [None]
